FAERS Safety Report 9562113 (Version 3)
Quarter: 2013Q4

REPORT INFORMATION
  Report Type: Report from Study
  Country: US (occurrence: US)
  Receive Date: 20130927
  Receipt Date: 20131004
  Transmission Date: 20140711
  Serious: Yes (Death, Life-Threatening, Hospitalization, Other)
  Sender: FDA-Public Use
  Company Number: US-PFIZER INC-2013274158

PATIENT
  Age: 69 Year
  Sex: Male
  Weight: 66.3 kg

DRUGS (4)
  1. BLINDED CELECOXIB [Suspect]
     Indication: NON-SMALL CELL LUNG CANCER
     Dosage: 400 MG, 2X/DAY
     Route: 048
     Dates: start: 20130906, end: 20130913
  2. BLINDED PLACEBO [Suspect]
     Indication: NON-SMALL CELL LUNG CANCER
     Dosage: 400 MG, 2X/DAY
     Route: 048
     Dates: start: 20130906, end: 20130913
  3. CARBOPLATIN [Suspect]
     Indication: NON-SMALL CELL LUNG CANCER
     Dosage: AUC = 5.5 DAY 1 (AUC = 5.0 WITH PRIOR CHEST RADIOTHERAPY)
     Route: 042
     Dates: start: 20130829
  4. GEMCITABINE HYDROCHLORIDE [Suspect]
     Indication: NON-SMALL CELL LUNG CANCER
     Dosage: 1000 MG/M2 DAYS 1 AND 8
     Route: 042
     Dates: start: 20130829

REACTIONS (6)
  - Sepsis [Fatal]
  - Febrile neutropenia [Unknown]
  - Thrombocytopenia [Unknown]
  - Lung infection [Unknown]
  - Lower gastrointestinal haemorrhage [Unknown]
  - Upper gastrointestinal haemorrhage [Recovered/Resolved]
